FAERS Safety Report 15892955 (Version 1)
Quarter: 2019Q1

REPORT INFORMATION
  Report Type: Spontaneous
  Country: BE (occurrence: BE)
  Receive Date: 20190130
  Receipt Date: 20190130
  Transmission Date: 20190417
  Serious: No
  Sender: FDA-Public Use
  Company Number: BE-IPSEN-CABO-18016287

PATIENT
  Sex: Male

DRUGS (1)
  1. CABOMETYX [Suspect]
     Active Substance: CABOZANTINIB S-MALATE
     Indication: PRODUCT USED FOR UNKNOWN INDICATION
     Dosage: 40 MG, UNK

REACTIONS (3)
  - Oropharyngeal pain [Recovering/Resolving]
  - Paraesthesia oral [Recovering/Resolving]
  - Lip pain [Recovering/Resolving]

NARRATIVE: CASE EVENT DATE: 20180927
